FAERS Safety Report 20264958 (Version 2)
Quarter: 2022Q1

REPORT INFORMATION
  Report Type: Spontaneous
  Country: IT (occurrence: IT)
  Receive Date: 20211231
  Receipt Date: 20220107
  Transmission Date: 20220423
  Serious: Yes (Other)
  Sender: FDA-Public Use
  Company Number: IT-NOVARTISPH-NVSC2021IT297896

PATIENT
  Age: 81 Year
  Sex: Male

DRUGS (3)
  1. TACROLIMUS [Suspect]
     Active Substance: TACROLIMUS
     Indication: Renal transplant
     Dosage: 3.5 MG, QD (ONCE DAILY)
     Route: 065
     Dates: start: 20151124
  2. MYFORTIC [Concomitant]
     Active Substance: MYCOPHENOLATE SODIUM
     Indication: Immunosuppression
     Dosage: 740 UNKNOWN UNITS, TOTAL DAILY DOSE
     Route: 065
     Dates: start: 20100721
  3. MEDROL [Concomitant]
     Active Substance: METHYLPREDNISOLONE
     Indication: Immunosuppression
     Dosage: 2.5 UNKNOWN UNITS TOTAL DAILY DOSE
     Route: 065
     Dates: start: 20150924

REACTIONS (1)
  - Cardiac ventricular thrombosis [Recovered/Resolved]

NARRATIVE: CASE EVENT DATE: 20180928
